FAERS Safety Report 24164423 (Version 1)
Quarter: 2024Q3

REPORT INFORMATION
  Report Type: Spontaneous
  Country: KR (occurrence: KR)
  Receive Date: 20240801
  Receipt Date: 20240801
  Transmission Date: 20241017
  Serious: Yes (Other)
  Sender: BRISTOL MYERS SQUIBB
  Company Number: KR-BRISTOL-MYERS SQUIBB COMPANY-2024-117139

PATIENT
  Age: 68 Year
  Sex: Male
  Weight: 51.5 kg

DRUGS (22)
  1. BARACLUDE [Suspect]
     Active Substance: ENTECAVIR
     Indication: Product used for unknown indication
     Dates: start: 20190729
  2. RITUXIMAB [Suspect]
     Active Substance: RITUXIMAB
     Indication: Product used for unknown indication
     Dates: start: 20190812
  3. RITUXIMAB [Suspect]
     Active Substance: RITUXIMAB
     Dates: start: 20190902
  4. RITUXIMAB [Suspect]
     Active Substance: RITUXIMAB
     Dates: start: 20190927
  5. RITUXIMAB [Suspect]
     Active Substance: RITUXIMAB
     Dates: start: 20191019
  6. RITUXIMAB [Suspect]
     Active Substance: RITUXIMAB
     Dates: start: 20191108
  7. DOXORUBICIN HYDROCHLORIDE [Concomitant]
     Active Substance: DOXORUBICIN HYDROCHLORIDE
     Dates: start: 20190821, end: 20190821
  8. DOXORUBICIN HYDROCHLORIDE [Concomitant]
     Active Substance: DOXORUBICIN HYDROCHLORIDE
     Dates: start: 20190902, end: 20190902
  9. DOXORUBICIN HYDROCHLORIDE [Concomitant]
     Active Substance: DOXORUBICIN HYDROCHLORIDE
     Dates: start: 20190927, end: 20190927
  10. DOXORUBICIN HYDROCHLORIDE [Concomitant]
     Active Substance: DOXORUBICIN HYDROCHLORIDE
     Dates: start: 20191108, end: 20191108
  11. DOXORUBICIN HYDROCHLORIDE [Concomitant]
     Active Substance: DOXORUBICIN HYDROCHLORIDE
     Dates: start: 20190812, end: 20190812
  12. PREDNISOLONE [Concomitant]
     Active Substance: PREDNISOLONE
     Dates: start: 20190902, end: 20190902
  13. PREDNISOLONE [Concomitant]
     Active Substance: PREDNISOLONE
     Dates: start: 20190927, end: 20190927
  14. PREDNISOLONE [Concomitant]
     Active Substance: PREDNISOLONE
     Dates: start: 20191019, end: 20191019
  15. PREDNISOLONE [Concomitant]
     Active Substance: PREDNISOLONE
     Dates: start: 20191108, end: 20191108
  16. PREDNISOLONE [Concomitant]
     Active Substance: PREDNISOLONE
     Dates: start: 20190812, end: 20190812
  17. CYCLOPHOSPHAMIDE [Concomitant]
     Active Substance: CYCLOPHOSPHAMIDE
     Dates: start: 20190927, end: 20190927
  18. CYCLOPHOSPHAMIDE [Concomitant]
     Active Substance: CYCLOPHOSPHAMIDE
     Dates: start: 20191019, end: 20191019
  19. CYCLOPHOSPHAMIDE [Concomitant]
     Active Substance: CYCLOPHOSPHAMIDE
     Dates: start: 20191108, end: 20191108
  20. CYCLOPHOSPHAMIDE [Concomitant]
     Active Substance: CYCLOPHOSPHAMIDE
     Dates: start: 20190902, end: 20190902
  21. DOXORUBICIN HYDROCHLORIDE [Concomitant]
     Active Substance: DOXORUBICIN HYDROCHLORIDE
     Dates: start: 20191019, end: 20191019
  22. SODIUM HYALURONATE [Concomitant]
     Active Substance: HYALURONATE SODIUM
     Dates: start: 20190821, end: 20190821

REACTIONS (1)
  - Neutropenia [Recovered/Resolved]

NARRATIVE: CASE EVENT DATE: 20191115
